FAERS Safety Report 7486371-0 (Version None)
Quarter: 2011Q2

REPORT INFORMATION
  Report Type: 
  Country: None (occurrence: None)
  Receive Date: 20110517
  Receipt Date: 20110510
  Transmission Date: 20111010
  Serious: Yes (Death, Hospitalization)
  Sender: FDA-Public Use
  Company Number: PHHY2011GB38887

PATIENT
  Age: 9 Year
  Sex: Male

DRUGS (5)
  1. LAMOTRIGINE [Suspect]
     Dosage: UNK UKN, UNK
  2. LEVETIRACETAM [Suspect]
     Dosage: UNK UKN, UNK
  3. DIAZEPAM [Concomitant]
     Dosage: UNK UKN, UNK
  4. VITAMIN K TAB [Concomitant]
     Dosage: UNK UKN, UNK
  5. THIOPENTAL SODIUM [Concomitant]
     Dosage: UNK UKN, UNK

REACTIONS (12)
  - CHOREOATHETOSIS [None]
  - ENCEPHALOPATHY [None]
  - MOVEMENT DISORDER [None]
  - RHABDOMYOLYSIS [None]
  - NEUROLOGICAL DECOMPENSATION [None]
  - STATUS EPILEPTICUS [None]
  - ACUTE HEPATIC FAILURE [None]
  - CARDIO-RESPIRATORY ARREST [None]
  - METABOLIC ACIDOSIS [None]
  - HEPATORENAL FAILURE [None]
  - HYPERPYREXIA [None]
  - DYSTONIA [None]
